FAERS Safety Report 4517836-9 (Version None)
Quarter: 2004Q4

REPORT INFORMATION
  Report Type: 
  Country: None (occurrence: None)
  Receive Date: 20041130
  Receipt Date: 20041116
  Transmission Date: 20050328
  Serious: Yes (Hospitalization, Disabling)
  Sender: FDA-Public Use
  Company Number: 2003186495JP

PATIENT
  Age: 66 Year
  Sex: Female
  Weight: 54.5224 kg

DRUGS (5)
  1. EPIRUBICIN HYDROCHLORIDE (EPIRUBICIN HYDROCHLORIDE) [Suspect]
     Indication: BREAST CANCER
     Dosage: (130 MG, CYCLIC), INTRAVENOUS
     Route: 042
     Dates: start: 20031106, end: 20031106
  2. CYCLOPHOSPHAMIDE [Suspect]
     Indication: BREAST CANCER
     Dosage: (900 MG, CYCLIC), INTRAVENOUS
     Route: 042
     Dates: start: 20031106, end: 20031106
  3. DECADRON [Suspect]
     Indication: PREMEDICATION
     Dosage: 8 MG, INTRAVENOUS
     Route: 042
     Dates: start: 20031106, end: 20031106
  4. SEROTONE (AZASETRON HYDROCHLORIDE) [Suspect]
     Indication: VOMITING
     Dosage: 10 MG, INTRAVENOUS
     Route: 042
     Dates: start: 20031106, end: 20031106
  5. GASTER (FAMOTIDINE) [Suspect]
     Indication: PREMEDICATION
     Dosage: 20 MG, INTRAVENOUS
     Route: 042
     Dates: start: 20031106, end: 20031106

REACTIONS (6)
  - BLOOD VISCOSITY INCREASED [None]
  - CEREBRAL INFARCTION [None]
  - CEREBRAL ISCHAEMIA [None]
  - DEHYDRATION [None]
  - DEPRESSED MOOD [None]
  - WHITE BLOOD CELL COUNT DECREASED [None]
